FAERS Safety Report 8582914-4 (Version None)
Quarter: 2012Q3

REPORT INFORMATION
  Report Type: 
  Country: None (occurrence: None)
  Receive Date: 20120809
  Receipt Date: 20120726
  Transmission Date: 20120928
  Serious: Yes (Other)
  Sender: FDA-Public Use
  Company Number: US-VERTEX PHARMACEUTICALS INC.-AE-2012-011470

PATIENT

DRUGS (3)
  1. INCIVEK [Suspect]
     Indication: HEPATITIS C
     Dates: end: 20120501
  2. PEGINTERFERON ALFA-2A [Concomitant]
     Indication: HEPATITIS C
     Dates: end: 20120501
  3. RIBAVIRIN [Concomitant]
     Indication: HEPATITIS C
     Dates: end: 20120501

REACTIONS (9)
  - NEOPLASM MALIGNANT [None]
  - PSYCHOTIC DISORDER [None]
  - INFECTION [None]
  - THROMBOCYTOPENIA [None]
  - RASH [None]
  - HEPATIC CIRRHOSIS [None]
  - UNEVALUABLE EVENT [None]
  - PATHOGEN RESISTANCE [None]
  - ANAEMIA [None]
